FAERS Safety Report 26058792 (Version 1)
Quarter: 2025Q4

REPORT INFORMATION
  Report Type: Spontaneous
  Country: EU (occurrence: EU)
  Receive Date: 20251118
  Receipt Date: 20251118
  Transmission Date: 20260118
  Serious: Yes (Death, Other)
  Sender: AUROBINDO
  Company Number: EU-ABBVIE-6532247

PATIENT
  Age: 82 Year
  Sex: Male

DRUGS (25)
  1. AZACITIDINE [Suspect]
     Active Substance: AZACITIDINE
     Indication: Acute myeloid leukaemia
     Dosage: 75 MILLIGRAM/SQ. METER (75 MILLIGRA
     Route: 065
     Dates: start: 20240829, end: 20240904
  2. AZACITIDINE [Suspect]
     Active Substance: AZACITIDINE
     Dosage: 75 MILLIGRAM/SQ. METER
     Route: 065
     Dates: start: 20241014, end: 20241021
  3. AZACITIDINE [Suspect]
     Active Substance: AZACITIDINE
     Dosage: DOSE: 0MMG/M^2END OF CYCLE(7 DAYS)
     Route: 065
     Dates: start: 20241022, end: 20241022
  4. AZACITIDINE [Suspect]
     Active Substance: AZACITIDINE
     Dosage: 75 MILLIGRAM/SQ. METER (END OF CYCLE(
     Route: 065
     Dates: start: 20241111, end: 20241119
  5. AZACITIDINE [Suspect]
     Active Substance: AZACITIDINE
     Dosage: 138 MILLIGRAM/SQ. METER (END OF CYCLE
     Route: 065
     Dates: start: 20241216, end: 20241224
  6. AZACITIDINE [Suspect]
     Active Substance: AZACITIDINE
     Dosage: 138 MILLIGRAM/SQ. METER (END OF CYCLE(7 DAYS))
     Route: 065
     Dates: start: 20250120, end: 20250127
  7. AZACITIDINE [Suspect]
     Active Substance: AZACITIDINE
     Dosage: 138 MILLIGRAM/SQ. METER (END OF CYCLE
     Route: 065
     Dates: start: 20250224, end: 20250304
  8. AZACITIDINE [Suspect]
     Active Substance: AZACITIDINE
     Dosage: 139 MILLIGRAM/SQ. METER (END OF CYCLE(7 DAYS))
     Route: 065
     Dates: start: 20250331, end: 20250406
  9. VENETOCLAX [Suspect]
     Active Substance: VENETOCLAX
     Indication: Acute myeloid leukaemia
     Dosage: 10 MILLIGRAM, ONCE A DAY (RAMP- UP DOSE)
     Dates: start: 20240829, end: 20240829
  10. VENETOCLAX [Suspect]
     Active Substance: VENETOCLAX
     Dosage: 20 MILLIGRAM, ONCE A DAY (RAMP- UP DOSE)
     Dates: start: 20240830, end: 20240830
  11. VENETOCLAX [Suspect]
     Active Substance: VENETOCLAX
     Dosage: 50 MILLIGRAM, ONCE A DAY
     Dates: start: 20240831, end: 20240831
  12. VENETOCLAX [Suspect]
     Active Substance: VENETOCLAX
     Dosage: 70 MILLIGRAM, ONCE A DAY (DOSE INTERRUPTED)
     Dates: start: 20240901, end: 20240927
  13. VENETOCLAX [Suspect]
     Active Substance: VENETOCLAX
     Dosage: DOSE:0MGEND OF CYCLE(28 DAYS)
     Dates: start: 20240928, end: 20240928
  14. VENETOCLAX [Suspect]
     Active Substance: VENETOCLAX
     Dosage: 400 MILLIGRAM, ONCE A DAY (DOSE INTERRUPTED)
     Dates: start: 20241014, end: 20241020
  15. VENETOCLAX [Suspect]
     Active Substance: VENETOCLAX
     Dosage: DOSE:0 MGEND OF CYCLE(28 DAYS)
     Dates: start: 20241021, end: 20241110
  16. VENETOCLAX [Suspect]
     Active Substance: VENETOCLAX
     Dosage: 400 MILLIGRAM, ONCE A DAY (DOSE INTERRUPTED)
     Dates: start: 20241111, end: 20241129
  17. VENETOCLAX [Suspect]
     Active Substance: VENETOCLAX
     Dosage: DOSE:0 MGEND OF CYCLE(28 DAYS)
     Dates: start: 20241130, end: 20241208
  18. VENETOCLAX [Suspect]
     Active Substance: VENETOCLAX
     Dosage: 400 MILLIGRAM, ONCE A DAY (END OF CYCLE(28 DAYS))
     Dates: start: 20241216, end: 20250104
  19. VENETOCLAX [Suspect]
     Active Substance: VENETOCLAX
     Dosage: 400 MILLIGRAM, ONCE A DAY (END OF CYCLE(28 DAYS))
     Dates: start: 20250120, end: 20250210
  20. VENETOCLAX [Suspect]
     Active Substance: VENETOCLAX
     Dosage: 400 MILLIGRAM, ONCE A DAY (DOSE INTERRUPTED)
     Dates: start: 20250224, end: 20250310
  21. VENETOCLAX [Suspect]
     Active Substance: VENETOCLAX
     Dosage: 400 MILLIGRAM, ONCE A DAY
     Dates: start: 20250331, end: 20250413
  22. SOFOSBUVIR AND VELPATASVIR [Concomitant]
     Active Substance: SOFOSBUVIR\VELPATASVIR
     Indication: Hepatitis C RNA
     Dosage: DOSE: 400/100 MG
     Dates: start: 20240816, end: 20241115
  23. ALLOPURINOL [Concomitant]
     Active Substance: ALLOPURINOL
     Indication: Prophylaxis
     Dosage: 300 MILLIGRAM, ONCE A DAY
     Dates: start: 202408, end: 202408
  24. POSACONAZOLE [Concomitant]
     Active Substance: POSACONAZOLE
     Indication: Antifungal prophylaxis
     Dosage: 300 MILLIGRAM, ONCE A DAY
     Dates: start: 202408, end: 20240930
  25. AZITHROMYCIN [Concomitant]
     Active Substance: AZITHROMYCIN
     Indication: Pneumonia
     Dosage: 500 MILLIGRAM, ONCE A DAY
     Dates: start: 20240902, end: 20240905

REACTIONS (2)
  - Death [Fatal]
  - Neutropenia [Recovered/Resolved]

NARRATIVE: CASE EVENT DATE: 20250310
